FAERS Safety Report 12565814 (Version 1)
Quarter: 2016Q3

REPORT INFORMATION
  Report Type: Spontaneous
  Country: TW (occurrence: TW)
  Receive Date: 20160718
  Receipt Date: 20160718
  Transmission Date: 20161109
  Serious: Yes (Death, Hospitalization)
  Sender: FDA-Public Use
  Company Number: TW-ELI_LILLY_AND_COMPANY-TW201607002230

PATIENT
  Age: 74 Year
  Sex: Male

DRUGS (2)
  1. ALIMTA [Suspect]
     Active Substance: PEMETREXED DISODIUM
     Indication: LUNG NEOPLASM MALIGNANT
     Dosage: UNK, UNKNOWN
     Route: 065
     Dates: start: 20160622
  2. STRESSTAB                          /02364401/ [Concomitant]
     Dosage: UNK, UNKNOWN
     Route: 065

REACTIONS (4)
  - White blood cell count decreased [Unknown]
  - Platelet count decreased [Unknown]
  - Oral mucosal eruption [Unknown]
  - Death [Fatal]

NARRATIVE: CASE EVENT DATE: 20160629
